FAERS Safety Report 4574196-5 (Version None)
Quarter: 2005Q1

REPORT INFORMATION
  Report Type: 
  Country: None (occurrence: None)
  Receive Date: 20050208
  Receipt Date: 20050128
  Transmission Date: 20050727
  Serious: Yes (Other)
  Sender: FDA-Public Use
  Company Number: PHBS2005JP01695

PATIENT
  Sex: 0

DRUGS (1)
  1. ZADITEN [Suspect]
     Route: 048

REACTIONS (1)
  - CYSTITIS HAEMORRHAGIC [None]
